FAERS Safety Report 7020896-7 (Version None)
Quarter: 2010Q3

REPORT INFORMATION
  Report Type: 
  Country: None (occurrence: None)
  Receive Date: 20100929
  Receipt Date: 20100920
  Transmission Date: 20110219
  Serious: Yes (Hospitalization)
  Sender: FDA-Public Use
  Company Number: NL-ABBOTT-10P-114-0669088-00

PATIENT
  Sex: Male

DRUGS (2)
  1. LUCRIN 11.25 MG [Suspect]
     Indication: PROSTATE CANCER
     Route: 058
     Dates: start: 20051024, end: 20100629
  2. LUCRIN 30 MG [Suspect]
     Indication: PROSTATE CANCER
     Route: 058
     Dates: start: 20090924

REACTIONS (4)
  - MALAISE [None]
  - PAIN [None]
  - PAIN IN EXTREMITY [None]
  - URINARY TRACT INFLAMMATION [None]
